FAERS Safety Report 4393671-X (Version None)
Quarter: 2004Q3

REPORT INFORMATION
  Report Type: 
  Country: None (occurrence: None)
  Receive Date: 20040709
  Receipt Date: 20040616
  Transmission Date: 20050211
  Serious: Yes (Death, Life-Threatening, Other)
  Sender: FDA-Public Use
  Company Number: JP-MERCK-0406USA01780

PATIENT
  Age: 7 Day
  Sex: Male
  Weight: 1 kg

DRUGS (10)
  1. BERACTANT [Concomitant]
     Indication: NEONATAL RESPIRATORY DISTRESS SYNDROME
     Route: 065
  2. DOBUTAMINE HYDROCHLORIDE [Concomitant]
     Route: 065
     Dates: start: 20030819
  3. KAKODIN [Concomitant]
     Route: 042
     Dates: start: 20030819
  4. SAXIZON [Concomitant]
     Indication: PATENT DUCTUS ARTERIOSUS
     Route: 042
     Dates: start: 20030824, end: 20030824
  5. SAXIZON [Concomitant]
     Route: 042
     Dates: start: 20030819
  6. SAXIZON [Concomitant]
     Indication: BLOOD PRESSURE INCREASED
     Route: 042
     Dates: start: 20030824, end: 20030824
  7. SAXIZON [Concomitant]
     Route: 042
     Dates: start: 20030819
  8. INDOCIN I.V. [Suspect]
     Indication: PATENT DUCTUS ARTERIOSUS
     Route: 042
     Dates: start: 20030821, end: 20030821
  9. INDOCIN I.V. [Suspect]
     Route: 042
     Dates: start: 20030824
  10. TOLAZOLINE HYDROCHLORIDE [Concomitant]
     Indication: PATENT DUCTUS ARTERIOSUS
     Route: 065

REACTIONS (5)
  - DRUG INEFFECTIVE [None]
  - ILEAL PERFORATION [None]
  - INTUSSUSCEPTION [None]
  - PNEUMOTHORAX [None]
  - RESPIRATORY FAILURE [None]
